FAERS Safety Report 15107145 (Version 4)
Quarter: 2018Q3

REPORT INFORMATION
  Report Type: Spontaneous
  Country: US (occurrence: US)
  Receive Date: 20180704
  Receipt Date: 20180821
  Transmission Date: 20181010
  Serious: Yes (Other)
  Sender: FDA-Public Use
  Company Number: US-PFIZER INC-2018270585

PATIENT
  Age: 63 Year
  Sex: Female
  Weight: 113.4 kg

DRUGS (2)
  1. LYRICA [Suspect]
     Active Substance: PREGABALIN
     Dosage: 300 MG, 2X/DAY
     Route: 048
     Dates: end: 20180716
  2. LYRICA [Suspect]
     Active Substance: PREGABALIN
     Indication: FIBROMYALGIA
     Dosage: 200 MG, UNK
     Route: 048
     Dates: start: 2017

REACTIONS (8)
  - Withdrawal syndrome [Unknown]
  - Cough [Unknown]
  - Pain [Unknown]
  - Hyperhidrosis [Unknown]
  - Apparent death [Unknown]
  - Pruritus [Unknown]
  - Spondylitis [Unknown]
  - Malaise [Unknown]
